FAERS Safety Report 6345762-1 (Version None)
Quarter: 2009Q3

REPORT INFORMATION
  Report Type: 
  Country: None (occurrence: None)
  Receive Date: 20090909
  Receipt Date: 20090831
  Transmission Date: 20100115
  Serious: Yes (Other)
  Sender: FDA-Public Use
  Company Number: US-JNJCH-2009023724

PATIENT
  Sex: Male

DRUGS (1)
  1. BENADRYL SEVERE ALLERGY + SINUS HEADACHE W/PE [Suspect]
     Indication: ARTHROPOD STING
     Dosage: TEXT:UNSPECIFIED
     Route: 048

REACTIONS (2)
  - LOSS OF CONSCIOUSNESS [None]
  - OFF LABEL USE [None]
